FAERS Safety Report 9695840 (Version 1)
Quarter: 2013Q4

REPORT INFORMATION
  Report Type: Spontaneous
  Country: US (occurrence: None)
  Receive Date: 20131118
  Receipt Date: 20131118
  Transmission Date: 20140711
  Serious: Yes (Hospitalization)
  Sender: FDA-Public Use
  Company Number: None

PATIENT
  Age: 82 Year
  Sex: Female
  Weight: 51 kg

DRUGS (6)
  1. ELIQUIS [Suspect]
     Indication: ATRIAL FIBRILLATION
     Dosage: 1 PILL
     Route: 048
     Dates: start: 20131023, end: 20131114
  2. LASIX 40 MG [Concomitant]
  3. COREG 6.25 MG [Concomitant]
  4. SYNTHROID 125 MCG [Concomitant]
  5. IRBESARTAN 150 MG [Concomitant]
  6. PANTOPRAZOLE 40 MG POWDER FOR SOLUTION FOR INJECTION [Concomitant]

REACTIONS (1)
  - Transient ischaemic attack [None]
